FAERS Safety Report 9199128 (Version 3)
Quarter: 2013Q2

REPORT INFORMATION
  Report Type: Spontaneous
  Country: US (occurrence: US)
  Receive Date: 20130329
  Receipt Date: 20130626
  Transmission Date: 20140414
  Serious: Yes (Hospitalization, Other)
  Sender: FDA-Public Use
  Company Number: US-BAXTER-2013BAX011177

PATIENT
  Age: 30 Year
  Sex: Female

DRUGS (2)
  1. DIANEAL LOW CALCIUM [Suspect]
     Indication: PERITONEAL DIALYSIS
     Route: 033
     Dates: start: 20080929
  2. DIANEAL LOW CALCIUM [Suspect]
     Indication: PERITONEAL DIALYSIS
     Route: 033
     Dates: start: 20080929

REACTIONS (4)
  - Sickle cell anaemia [Recovering/Resolving]
  - Swelling [Recovered/Resolved]
  - Chest pain [Recovering/Resolving]
  - Dyspnoea [Recovering/Resolving]
